FAERS Safety Report 10974777 (Version 1)
Quarter: 2015Q2

REPORT INFORMATION
  Report Type: Spontaneous
  Country: NO (occurrence: NO)
  Receive Date: 20150401
  Receipt Date: 20150401
  Transmission Date: 20150821
  Serious: Yes (Death, Life-Threatening, Hospitalization, Other)
  Sender: FDA-Public Use
  Company Number: NO-BAXTER-2015BAX015833

PATIENT
  Age: 3 Year
  Sex: Female

DRUGS (7)
  1. METHOTREXATE [Suspect]
     Active Substance: METHOTREXATE
     Indication: MEDULLOBLASTOMA
     Route: 065
  2. CARBOPLATIN. [Suspect]
     Active Substance: CARBOPLATIN
     Indication: MEDULLOBLASTOMA
     Route: 065
  3. SENDOXAN 1000 MG PULVER TIL INJEKSJONSV?SKE, OPPL?SNING [Suspect]
     Active Substance: CYCLOPHOSPHAMIDE
     Indication: MEDULLOBLASTOMA
     Route: 042
  4. SENDOXAN 1000 MG PULVER TIL INJEKSJONSV?SKE, OPPL?SNING [Suspect]
     Active Substance: CYCLOPHOSPHAMIDE
     Indication: OFF LABEL USE
  5. EXITOP KONSENTRAT TIL INFUSJONSV?SKE 20 MG/ML [Suspect]
     Active Substance: ETOPOSIDE
     Indication: OFF LABEL USE
  6. EXITOP KONSENTRAT TIL INFUSJONSV?SKE 20 MG/ML [Suspect]
     Active Substance: ETOPOSIDE
     Indication: MEDULLOBLASTOMA
     Route: 065
  7. VINCRISTINE [Suspect]
     Active Substance: VINCRISTINE
     Indication: MEDULLOBLASTOMA
     Route: 042

REACTIONS (10)
  - Cholecystitis [Unknown]
  - Feeding disorder [Unknown]
  - Mucosal inflammation [Unknown]
  - Renal impairment [Unknown]
  - Bone marrow failure [Not Recovered/Not Resolved]
  - Off label use [None]
  - Infection [Unknown]
  - Brain herniation [Fatal]
  - Medulloblastoma recurrent [Unknown]
  - Cholangitis [Unknown]
